FAERS Safety Report 6455637-5 (Version None)
Quarter: 2009Q4

REPORT INFORMATION
  Report Type: 
  Country: None (occurrence: None)
  Receive Date: 20091125
  Receipt Date: 20090909
  Transmission Date: 20100525
  Serious: No
  Sender: FDA-Public Use
  Company Number: US-ABBOTT-09P-163-0596899-00

PATIENT
  Sex: Female

DRUGS (4)
  1. SIMCOR [Suspect]
     Indication: BLOOD CHOLESTEROL INCREASED
     Dosage: 1000/20MG DAILY
     Dates: start: 20090729, end: 20090801
  2. SIMCOR [Suspect]
     Dosage: 500/10MG, THE PATIENT CUT A TABLET OF THE 1000/20MG IN HALF
     Dates: start: 20090801
  3. LEVOTHYROXINE SODIUM [Concomitant]
     Indication: HYPOTHYROIDISM
     Dosage: UNKNOWN
  4. VITAMINS [Concomitant]
     Indication: VITAMIN SUPPLEMENTATION
     Dosage: UNKNOWN

REACTIONS (3)
  - FLUSHING [None]
  - RASH [None]
  - SKIN BURNING SENSATION [None]
